FAERS Safety Report 9078306 (Version 1)
Quarter: 2013Q1

REPORT INFORMATION
  Report Type: Report from Study
  Country: US (occurrence: US)
  Receive Date: 20130130
  Receipt Date: 20130130
  Transmission Date: 20140127
  Serious: No
  Sender: FDA-Public Use
  Company Number: US-ABBOTT-12P-163-0958749-00

PATIENT
  Age: 19 Year
  Sex: Male

DRUGS (9)
  1. HUMIRA 40 MG/0.8 ML PEN [Suspect]
     Indication: CROHN^S DISEASE
     Dates: start: 20120618
  2. PENTASA [Concomitant]
     Indication: PRODUCT USED FOR UNKNOWN INDICATION
     Dosage: 4 IN THE AM, 4 IN THE PM
  3. SINGULAIR [Concomitant]
     Indication: PRODUCT USED FOR UNKNOWN INDICATION
     Dosage: IN THE EVENING
  4. XYZAL [Concomitant]
     Indication: PRODUCT USED FOR UNKNOWN INDICATION
     Dosage: IN THE MORNING
  5. CENTRUM [Concomitant]
     Indication: PRODUCT USED FOR UNKNOWN INDICATION
  6. D3 [Concomitant]
     Indication: PRODUCT USED FOR UNKNOWN INDICATION
     Dosage: ONE IN THE AM, TWO AT NIGHT
  7. CULTURELLE [Concomitant]
     Indication: PRODUCT USED FOR UNKNOWN INDICATION
     Dosage: EVERY DAY
  8. BUDESONIDE [Concomitant]
     Indication: PRODUCT USED FOR UNKNOWN INDICATION
     Dosage: EVERY MORNING, BEEN ON STERIOD FOR ONE YEAR AND THE DOCTOR^S PLAN IS TO WEAN HIM OFF
  9. BUDESONIDE [Concomitant]
     Dosage: EVERY MORNING, BEEN ON STERIOD FOR ONE YEAR AND THE DOCTOR^S PLAN IS TO WEAN HIM OFF

REACTIONS (2)
  - Nervousness [Recovered/Resolved]
  - Injection site pain [Recovered/Resolved]
